FAERS Safety Report 14662265 (Version 1)
Quarter: 2018Q1

REPORT INFORMATION
  Report Type: Other
  Country: US (occurrence: US)
  Receive Date: 20180321
  Receipt Date: 20180321
  Transmission Date: 20180509
  Serious: Yes (Life-Threatening)
  Sender: FDA-Public Use
  Company Number: US-WES PHARMA INC-2044176

PATIENT
  Age: 42 Year
  Sex: Female

DRUGS (5)
  1. ACEPROMAZINE [Suspect]
     Active Substance: ACEPROMAZINE
     Route: 065
  2. DICYCLOMINE [Suspect]
     Active Substance: DICYCLOMINE HYDROCHLORIDE
     Route: 065
  3. D-AMPHETAMINE [Suspect]
     Active Substance: DEXTROAMPHETAMINE
     Route: 065
  4. BUSPIRONE [Suspect]
     Active Substance: BUSPIRONE HYDROCHLORIDE
     Route: 065
  5. OXYCODONE HYDROCHLORIDE. [Suspect]
     Active Substance: OXYCODONE HYDROCHLORIDE
     Indication: PRODUCT USED FOR UNKNOWN INDICATION
     Route: 065

REACTIONS (4)
  - Overdose [Recovered/Resolved]
  - Hypothermia [Recovered/Resolved]
  - Rhabdomyolysis [Recovered/Resolved]
  - Neuroleptic malignant syndrome [Recovered/Resolved]
